FAERS Safety Report 18711567 (Version 1)
Quarter: 2021Q1

REPORT INFORMATION
  Report Type: Spontaneous
  Country: US (occurrence: US)
  Receive Date: 20210106
  Receipt Date: 20210106
  Transmission Date: 20210419
  Serious: Yes (Hospitalization)
  Sender: FDA-Public Use
  Company Number: None

PATIENT
  Sex: Male

DRUGS (8)
  1. HYDROCO/APAP [Concomitant]
     Active Substance: ACETAMINOPHEN\HYDROCODONE
  2. XELJANZ [Suspect]
     Active Substance: TOFACITINIB CITRATE
     Indication: RHEUMATOID ARTHRITIS
     Route: 048
     Dates: start: 20181108
  3. DOXYCYC HYC [Concomitant]
  4. FOLIC ACID. [Concomitant]
     Active Substance: FOLIC ACID
  5. METHYPRED [Concomitant]
  6. TRAMADOL. [Concomitant]
     Active Substance: TRAMADOL
  7. ALLEGRA [Concomitant]
     Active Substance: FEXOFENADINE HYDROCHLORIDE
  8. METHOTREXATE. [Concomitant]
     Active Substance: METHOTREXATE

REACTIONS (2)
  - COVID-19 [None]
  - Condition aggravated [None]
